FAERS Safety Report 8075543-2 (Version None)
Quarter: 2012Q1

REPORT INFORMATION
  Report Type: 
  Country: None (occurrence: None)
  Receive Date: 20120127
  Receipt Date: 20120123
  Transmission Date: 20120608
  Serious: Yes (Hospitalization, Other)
  Sender: FDA-Public Use
  Company Number: BR-SANOFI-AVENTIS-2012SA004977

PATIENT
  Age: 87 Year
  Sex: Male
  Weight: 70 kg

DRUGS (3)
  1. LANTUS [Suspect]
     Indication: TYPE 2 DIABETES MELLITUS
     Dosage: START DATE: APPROXIMATELY 4 YEARS AGO
     Route: 058
  2. CLIKSTAR [Suspect]
     Indication: DEVICE THERAPY
     Route: 058
  3. INSULIN [Concomitant]
     Dosage: ACCORDING TO GLYCEMIC LEVEL
     Route: 058

REACTIONS (4)
  - HEAD INJURY [None]
  - THROMBOSIS [None]
  - FALL [None]
  - HAEMORRHAGE [None]
